FAERS Safety Report 9367116 (Version 1)
Quarter: 2013Q2

REPORT INFORMATION
  Report Type: Report from Study
  Country: US (occurrence: US)
  Receive Date: 20130625
  Receipt Date: 20130625
  Transmission Date: 20140414
  Serious: Yes (Other)
  Sender: FDA-Public Use
  Company Number: US-JNJFOC-20130402589

PATIENT
  Sex: Female
  Weight: 102.06 kg

DRUGS (8)
  1. SIMPONI [Suspect]
     Indication: RHEUMATOID ARTHRITIS
     Route: 058
  2. SIMPONI [Suspect]
     Indication: RHEUMATOID ARTHRITIS
     Route: 058
     Dates: start: 201001, end: 201204
  3. PLAQUENIL [Concomitant]
     Indication: SJOGREN^S SYNDROME
     Route: 065
     Dates: start: 2004
  4. PLAQUENIL [Concomitant]
     Indication: RHEUMATOID ARTHRITIS
     Route: 065
     Dates: start: 2004
  5. ACICLOVIR [Concomitant]
     Indication: HERPES VIRUS INFECTION
     Route: 065
     Dates: start: 2008
  6. PROZAC [Concomitant]
     Indication: DEPRESSION
     Route: 065
     Dates: start: 2002
  7. FIORICET [Concomitant]
     Indication: MIGRAINE
     Route: 065
     Dates: start: 2007
  8. PRENATAL VITAMINS [Concomitant]

REACTIONS (4)
  - Premature labour [Recovered/Resolved]
  - Oligohydramnios [Recovered/Resolved]
  - Exposure during pregnancy [Recovered/Resolved]
  - Ventricular extrasystoles [Recovered/Resolved]
